FAERS Safety Report 24309205 (Version 1)
Quarter: 2024Q3

REPORT INFORMATION
  Report Type: Spontaneous
  Country: US (occurrence: US)
  Receive Date: 20240911
  Receipt Date: 20240911
  Transmission Date: 20241017
  Serious: Yes (Life-Threatening, Other)
  Sender: NIVAGEN PHARMACEUTICALS
  Company Number: US-NPI-000037

PATIENT
  Age: 48 Year
  Sex: Female
  Weight: 110 kg

DRUGS (7)
  1. METHOHEXITAL [Concomitant]
     Active Substance: METHOHEXITAL
     Indication: Anaesthesia
     Route: 042
  2. METHOHEXITAL [Concomitant]
     Active Substance: METHOHEXITAL
     Indication: Anaesthesia
     Route: 065
  3. METHOHEXITAL [Concomitant]
     Active Substance: METHOHEXITAL
     Indication: Anaesthesia
     Dosage: 60 TO 100 MG
     Route: 065
  4. EPINEPHRINE [Concomitant]
     Active Substance: EPINEPHRINE
     Indication: Bronchospasm
     Dosage: 10 TO 20 MCG
     Route: 042
  5. EPINEPHRINE [Concomitant]
     Active Substance: EPINEPHRINE
     Indication: Bronchospasm
     Route: 058
  6. KETAMINE [Concomitant]
     Active Substance: KETAMINE
     Indication: Anaesthesia
     Route: 042
  7. SUCCINYLCHOLINE CHLORIDE [Suspect]
     Active Substance: SUCCINYLCHOLINE CHLORIDE
     Indication: Anaesthesia
     Dosage: PLUS 100 TO 120 MG
     Route: 042

REACTIONS (2)
  - Hypoxia [Recovered/Resolved]
  - Upper airway obstruction [Recovered/Resolved]
